FAERS Safety Report 19646052 (Version 1)
Quarter: 2021Q3

REPORT INFORMATION
  Report Type: Spontaneous
  Country: US (occurrence: US)
  Receive Date: 20210802
  Receipt Date: 20210802
  Transmission Date: 20211014
  Serious: Yes (Other)
  Sender: FDA-Public Use
  Company Number: US-GLAXOSMITHKLINE-US2021GSK164448

PATIENT
  Sex: Female
  Weight: 80 kg

DRUGS (8)
  1. ZANTAC [Suspect]
     Active Substance: RANITIDINE HYDROCHLORIDE
     Indication: DUODENAL ULCER
     Dosage: 75 MG
     Route: 065
     Dates: start: 199001, end: 200712
  2. RANITIDINE. [Suspect]
     Active Substance: RANITIDINE
     Indication: DUODENAL ULCER
     Dosage: 75 MG
     Route: 065
     Dates: start: 199001, end: 200712
  3. ZANTAC [Suspect]
     Active Substance: RANITIDINE HYDROCHLORIDE
     Dosage: 150 MG
     Route: 065
     Dates: start: 199001, end: 200712
  4. RANITIDINE CAPSULE [Suspect]
     Active Substance: RANITIDINE
     Dosage: 150 MG
     Route: 065
     Dates: start: 199001, end: 200712
  5. ZANTAC [Suspect]
     Active Substance: RANITIDINE HYDROCHLORIDE
     Dosage: 150 MG
     Route: 065
     Dates: start: 199001, end: 200712
  6. RANITIDINE. [Suspect]
     Active Substance: RANITIDINE
     Dosage: 150 MG
     Route: 065
     Dates: start: 199001, end: 200712
  7. ZANTAC [Suspect]
     Active Substance: RANITIDINE HYDROCHLORIDE
     Indication: DUODENAL ULCER
     Dosage: 75 MG
     Route: 065
     Dates: start: 199001, end: 200712
  8. RANITIDINE CAPSULE [Suspect]
     Active Substance: RANITIDINE
     Indication: DUODENAL ULCER
     Dosage: 75 MG
     Route: 065
     Dates: start: 199001, end: 200712

REACTIONS (1)
  - Breast cancer [Unknown]
